FAERS Safety Report 7215079-1 (Version None)
Quarter: 2011Q1

REPORT INFORMATION
  Report Type: 
  Country: None (occurrence: None)
  Receive Date: 20110107
  Receipt Date: 20100813
  Transmission Date: 20110831
  Serious: No
  Sender: FDA-Public Use
  Company Number: A0875748A

PATIENT
  Sex: Male

DRUGS (5)
  1. BLOOD PRESSURE MEDICATION [Concomitant]
  2. UNSPECIFIED MEDICATION [Concomitant]
  3. LIPITOR [Concomitant]
  4. LOVAZA [Suspect]
     Dosage: 2G TWICE PER DAY
     Route: 048
  5. JANUVIA [Concomitant]

REACTIONS (3)
  - BLOOD TRIGLYCERIDES INCREASED [None]
  - DRUG INEFFECTIVE [None]
  - LOW DENSITY LIPOPROTEIN INCREASED [None]
